FAERS Safety Report 15992376 (Version 3)
Quarter: 2020Q1

REPORT INFORMATION
  Report Type: Spontaneous
  Country: US (occurrence: US)
  Receive Date: 20190221
  Receipt Date: 20200320
  Transmission Date: 20200409
  Serious: Yes (Other)
  Sender: FDA-Public Use
  Company Number: PHEH2019US007130

PATIENT
  Sex: Female

DRUGS (1)
  1. TASIGNA [Suspect]
     Active Substance: NILOTINIB
     Indication: CHRONIC MYELOID LEUKAEMIA
     Dosage: 02 DF, BID
     Route: 048

REACTIONS (18)
  - Anaemia [Unknown]
  - Dehydration [Unknown]
  - Anxiety [Unknown]
  - Atrial fibrillation [Unknown]
  - Constipation [Unknown]
  - Coronary artery disease [Unknown]
  - Injury [Unknown]
  - Haemorrhoids [Unknown]
  - Hyperlipidaemia [Unknown]
  - Angina unstable [Unknown]
  - Bursitis [Unknown]
  - Diarrhoea [Unknown]
  - Rash [Unknown]
  - Sleep apnoea syndrome [Unknown]
  - Gastrooesophageal reflux disease [Unknown]
  - Arthralgia [Unknown]
  - Fatigue [Unknown]
  - Insomnia [Unknown]
